FAERS Safety Report 14244704 (Version 1)
Quarter: 2017Q4

REPORT INFORMATION
  Report Type: Spontaneous
  Country: US (occurrence: US)
  Receive Date: 20171201
  Receipt Date: 20171201
  Transmission Date: 20180321
  Serious: No
  Sender: FDA-Public Use
  Company Number: US-TEVA-2017-US-828480

PATIENT
  Sex: Female
  Weight: 82 kg

DRUGS (14)
  1. ELIMITE [Concomitant]
     Active Substance: PERMETHRIN
  2. VALIUM [Concomitant]
     Active Substance: DIAZEPAM
  3. PARAGARD T 380A [Suspect]
     Active Substance: COPPER
     Indication: CONTRACEPTION
     Dates: start: 20170202
  4. MOBIC [Concomitant]
     Active Substance: MELOXICAM
  5. MULTIVITAMIN [Concomitant]
     Active Substance: VITAMINS
  6. PERCOCET [Concomitant]
     Active Substance: ACETAMINOPHEN\OXYCODONE HYDROCHLORIDE
  7. FIORICET [Concomitant]
     Active Substance: ACETAMINOPHEN\BUTALBITAL\CAFFEINE
  8. NEURONTIN [Concomitant]
     Active Substance: GABAPENTIN
  9. KEPPRA [Concomitant]
     Active Substance: LEVETIRACETAM
  10. CYMBALTA [Concomitant]
     Active Substance: DULOXETINE HYDROCHLORIDE
  11. GLUCOSAMINE [Concomitant]
     Active Substance: GLUCOSAMINE
  12. VITAMIN D3 [Concomitant]
     Active Substance: CHOLECALCIFEROL
  13. ROBAXIN [Concomitant]
     Active Substance: METHOCARBAMOL
  14. ZOLOFT [Concomitant]
     Active Substance: SERTRALINE HYDROCHLORIDE

REACTIONS (3)
  - Device expulsion [Recovered/Resolved]
  - Vaginal haemorrhage [Unknown]
  - Pain [Unknown]
